FAERS Safety Report 14498490 (Version 2)
Quarter: 2018Q2

REPORT INFORMATION
  Report Type: Spontaneous
  Country: EG (occurrence: EG)
  Receive Date: 20180207
  Receipt Date: 20180416
  Transmission Date: 20180711
  Serious: Yes (Death, Other)
  Sender: FDA-Public Use
  Company Number: EG-SA-2018SA026510

PATIENT
  Age: 10 Month
  Sex: Female
  Weight: 7 kg

DRUGS (3)
  1. MYOZYME [Suspect]
     Active Substance: ALGLUCOSIDASE ALFA
     Indication: GLYCOGEN STORAGE DISEASE TYPE II
     Dosage: DOSE: 20 (UNITS UNSPECIFIED)
     Route: 041
     Dates: start: 20171206, end: 20180124
  2. INDERAL [Concomitant]
     Active Substance: PROPRANOLOL HYDROCHLORIDE
     Route: 065
     Dates: start: 201707, end: 20171224
  3. DOBUTAMINE [Concomitant]
     Active Substance: DOBUTAMINE\DOBUTAMINE HYDROCHLORIDE
     Indication: SHOCK
     Route: 065
     Dates: start: 20171222, end: 20171225

REACTIONS (6)
  - Death [Fatal]
  - Infection [Unknown]
  - Pyrexia [Unknown]
  - Platelet count decreased [Unknown]
  - Infusion related reaction [Recovered/Resolved]
  - Acute respiratory distress syndrome [Unknown]

NARRATIVE: CASE EVENT DATE: 20180111
